FAERS Safety Report 5804139-5 (Version None)
Quarter: 2008Q3

REPORT INFORMATION
  Report Type: 
  Country: None (occurrence: None)
  Receive Date: 20080707
  Receipt Date: 20080707
  Transmission Date: 20090109
  Serious: Yes (Hospitalization)
  Sender: FDA-Public Use
  Company Number: None

PATIENT
  Sex: Female
  Weight: 61.2356 kg

DRUGS (1)
  1. SOTRET [Suspect]
     Indication: ACNE
     Dosage: 20MG TWICE DAILY PO
     Route: 048
     Dates: start: 20080101, end: 20080701

REACTIONS (7)
  - ARTHRALGIA [None]
  - ARTHROPATHY [None]
  - MIGRAINE [None]
  - MUSCLE DISORDER [None]
  - MYALGIA [None]
  - PAIN [None]
  - TEMPOROMANDIBULAR JOINT SYNDROME [None]
